FAERS Safety Report 15810507 (Version 1)
Quarter: 2019Q1

REPORT INFORMATION
  Report Type: Spontaneous
  Country: US (occurrence: US)
  Receive Date: 20190111
  Receipt Date: 20190111
  Transmission Date: 20190417
  Serious: No
  Sender: FDA-Public Use
  Company Number: US-ROCHE-2148307

PATIENT
  Age: 21 Year
  Sex: Female

DRUGS (2)
  1. PLASMA EXCHANGE [Concomitant]
     Active Substance: ALBUMIN HUMAN
  2. RITUXIMAB. [Suspect]
     Active Substance: RITUXIMAB
     Indication: THROMBOTIC THROMBOCYTOPENIC PURPURA
     Route: 042

REACTIONS (1)
  - Hypersensitivity [Unknown]
